FAERS Safety Report 9506253 (Version 1)
Quarter: 2013Q1

REPORT INFORMATION
  Report Type: Spontaneous
  Country: US (occurrence: None)
  Receive Date: 20130301
  Receipt Date: 20130301
  Transmission Date: 20140127
  Serious: Yes (Other)
  Sender: FDA-Public Use
  Company Number: PHEH2012US005908

PATIENT
  Age: 69 Year
  Sex: Female

DRUGS (6)
  1. CARBAMAZEPINE [Suspect]
  2. FELODIPINE (FELODIPINE) [Concomitant]
  3. PRAVASTATIN (PRAVASTATIN) [Concomitant]
  4. DIASPANE [Concomitant]
  5. AMLODIPINE (AMLODIPINE) [Concomitant]
  6. ERYTHROMYCIN (ERYTHROMYCIN) [Concomitant]

REACTIONS (4)
  - Hypersensitivity [None]
  - Drug ineffective [None]
  - Urticaria [None]
  - Rash [None]
